FAERS Safety Report 16917352 (Version 1)
Quarter: 2019Q4

REPORT INFORMATION
  Report Type: Spontaneous
  Country: US (occurrence: US)
  Receive Date: 20191015
  Receipt Date: 20191015
  Transmission Date: 20200122
  Serious: Yes (Other)
  Sender: FDA-Public Use
  Company Number: US-GLAXOSMITHKLINE-US2019AMR185129

PATIENT
  Age: 47 Year
  Sex: Male
  Weight: 68.93 kg

DRUGS (6)
  1. PREDNISONE. [Concomitant]
     Active Substance: PREDNISONE
     Indication: PRODUCT USED FOR UNKNOWN INDICATION
     Dosage: UNK AS NEEDED
     Route: 048
  2. WELLBUTRIN XL [Suspect]
     Active Substance: BUPROPION HYDROCHLORIDE
     Indication: ATTENTION DEFICIT/HYPERACTIVITY DISORDER
     Dosage: 300 MG, QD
     Route: 048
     Dates: start: 201203
  3. WELLBUTRIN XL [Suspect]
     Active Substance: BUPROPION HYDROCHLORIDE
     Indication: PSYCHOMOTOR HYPERACTIVITY
     Dosage: 150 MG, QD
  4. WELLBUTRIN XL [Suspect]
     Active Substance: BUPROPION HYDROCHLORIDE
     Indication: AUTISM SPECTRUM DISORDER
  5. BYSTOLIC [Suspect]
     Active Substance: NEBIVOLOL HYDROCHLORIDE
     Indication: PRODUCT USED FOR UNKNOWN INDICATION
     Dosage: 2.5 MG, 1D
     Route: 048
     Dates: start: 201203
  6. CAFFEINE. [Suspect]
     Active Substance: CAFFEINE
     Indication: PRODUCT USED FOR UNKNOWN INDICATION
     Dosage: UNK
     Route: 065

REACTIONS (12)
  - Labelled drug-drug interaction medication error [Unknown]
  - Weight decreased [Recovered/Resolved]
  - Dental caries [Recovering/Resolving]
  - Personality disorder [Recovered/Resolved]
  - Heart rate decreased [Recovering/Resolving]
  - Aptyalism [Recovering/Resolving]
  - Urticaria [Recovered/Resolved]
  - Antisocial behaviour [Recovered/Resolved]
  - Product use in unapproved indication [Unknown]
  - Substance-induced psychotic disorder [Recovered/Resolved]
  - Tooth discolouration [Recovering/Resolving]
  - Nervousness [Recovered/Resolved]

NARRATIVE: CASE EVENT DATE: 2012
